FAERS Safety Report 10671836 (Version 2)
Quarter: 2014Q4

REPORT INFORMATION
  Report Type: Spontaneous
  Country: FR (occurrence: FR)
  Receive Date: 20141223
  Receipt Date: 20141230
  Transmission Date: 20150529
  Serious: Yes (Death, Hospitalization, Congenital Anomaly)
  Sender: FDA-Public Use
  Company Number: FR-FRI-1000073293

PATIENT
  Age: 0 Year
  Sex: Male
  Weight: 1.5 kg

DRUGS (4)
  1. EPITOMAX [Suspect]
     Active Substance: TOPIRAMATE
     Dosage: 2 DF
  2. QUETIAPINE FUMARATE. [Suspect]
     Active Substance: QUETIAPINE FUMARATE
     Dosage: 2 DF
  3. ACAMPROSATE [Suspect]
     Active Substance: ACAMPROSATE
  4. TAHOR [Suspect]
     Active Substance: ATORVASTATIN CALCIUM

REACTIONS (1)
  - Hydrocephalus [Fatal]

NARRATIVE: CASE EVENT DATE: 20130412
